FAERS Safety Report 13085206 (Version 1)
Quarter: 2017Q1

REPORT INFORMATION
  Report Type: Spontaneous
  Country: US (occurrence: US)
  Receive Date: 20170104
  Receipt Date: 20170104
  Transmission Date: 20170428
  Serious: No
  Sender: FDA-Public Use
  Company Number: US-ELI_LILLY_AND_COMPANY-US201612011026

PATIENT
  Age: 23 Year
  Sex: Male

DRUGS (6)
  1. HUMALOG [Suspect]
     Active Substance: INSULIN LISPRO
     Dosage: 2.6 U, EACH MORNING
     Route: 058
     Dates: start: 201106
  2. HUMALOG [Suspect]
     Active Substance: INSULIN LISPRO
     Dosage: 1.75 U, OTHER
     Route: 058
  3. HUMALOG [Suspect]
     Active Substance: INSULIN LISPRO
     Dosage: 1.7 U, EACH EVENING
     Route: 058
  4. HUMALOG [Suspect]
     Active Substance: INSULIN LISPRO
     Dosage: 1.7 U, EACH EVENING
     Route: 058
     Dates: start: 201106
  5. HUMALOG [Suspect]
     Active Substance: INSULIN LISPRO
     Dosage: 2.6 U, EACH MORNING
     Route: 058
  6. HUMALOG [Suspect]
     Active Substance: INSULIN LISPRO
     Indication: TYPE 1 DIABETES MELLITUS
     Dosage: 1.75 U, AT MIDNIGHT
     Route: 058
     Dates: start: 201106

REACTIONS (3)
  - Intentional product misuse [Unknown]
  - Blood glucose increased [Unknown]
  - Drug ineffective [Unknown]

NARRATIVE: CASE EVENT DATE: 20161224
